FAERS Safety Report 9345583 (Version 2)
Quarter: 2013Q2

REPORT INFORMATION
  Report Type: Spontaneous
  Country: ES (occurrence: ES)
  Receive Date: 20130613
  Receipt Date: 20130625
  Transmission Date: 20140414
  Serious: Yes (Hospitalization)
  Sender: FDA-Public Use
  Company Number: ES-SHIRE-ALL1-2013-03385

PATIENT
  Sex: Male

DRUGS (1)
  1. ELAPRASE [Suspect]
     Indication: MUCOPOLYSACCHARIDOSIS II
     Dosage: UNK, UNKNOWN
     Route: 041
     Dates: start: 201210

REACTIONS (6)
  - Supraventricular tachycardia [Recovered/Resolved]
  - Gastroenteritis [Unknown]
  - Bacterial infection [Unknown]
  - Malaise [Unknown]
  - Pyrexia [Unknown]
  - Rash [Unknown]
